FAERS Safety Report 6868387-8 (Version None)
Quarter: 2010Q3

REPORT INFORMATION
  Report Type: 
  Country: None (occurrence: None)
  Receive Date: 20100722
  Receipt Date: 20100715
  Transmission Date: 20110219
  Serious: Yes (Hospitalization)
  Sender: FDA-Public Use
  Company Number: FR-SANOFI-AVENTIS-2010SA041272

PATIENT
  Age: 84 Year
  Sex: Male

DRUGS (12)
  1. IXPRIM [Suspect]
     Route: 048
     Dates: start: 20100604, end: 20100607
  2. VIRLIX [Suspect]
     Route: 048
     Dates: end: 20100607
  3. XATRAL [Suspect]
     Route: 048
     Dates: end: 20100607
  4. ZOPICLONE [Suspect]
     Indication: INSOMNIA
     Route: 048
     Dates: end: 20100607
  5. XANAX [Suspect]
     Indication: ANXIETY
     Route: 048
     Dates: end: 20100607
  6. DAFALGAN CODEINE [Suspect]
     Route: 048
     Dates: end: 20100607
  7. LOPERAMIDE [Suspect]
     Route: 048
     Dates: end: 20100607
  8. ESCITALOPRAM OXALATE [Suspect]
     Route: 048
     Dates: end: 20100607
  9. COAPROVEL [Suspect]
     Route: 048
     Dates: end: 20100607
  10. GLUCOR [Concomitant]
     Route: 048
  11. PREVISCAN [Concomitant]
  12. PARACETAMOL [Concomitant]
     Route: 048
     Dates: start: 20100604

REACTIONS (2)
  - RENAL FAILURE ACUTE [None]
  - SOMNOLENCE [None]
